FAERS Safety Report 9540803 (Version 1)
Quarter: 2013Q3

REPORT INFORMATION
  Report Type: Spontaneous
  Country: US (occurrence: US)
  Receive Date: 20130920
  Receipt Date: 20130920
  Transmission Date: 20140515
  Serious: Yes (Other)
  Sender: FDA-Public Use
  Company Number: US-RB-058518-13

PATIENT
  Age: 33 Year
  Sex: Female

DRUGS (3)
  1. SUBOXONE TABLET [Suspect]
     Indication: DRUG DEPENDENCE
     Route: 060
     Dates: start: 2010, end: 2012
  2. BUPRENORPHINE GENERIC [Suspect]
     Indication: DRUG DEPENDENCE
     Route: 060
     Dates: start: 2012, end: 2012
  3. NICOTINE [Suspect]
     Indication: NICOTINE DEPENDENCE
     Dosage: 1 PACK CIGARETTES PER DAY
     Route: 055

REACTIONS (8)
  - Maternal exposure during pregnancy [Recovered/Resolved]
  - Victim of crime [Recovered/Resolved]
  - Stillbirth [Recovered/Resolved]
  - Tooth injury [Recovered/Resolved]
  - Jaw fracture [Recovered/Resolved]
  - Facial bones fracture [Recovered/Resolved]
  - Rib fracture [Recovered/Resolved]
  - Concussion [Recovered/Resolved]
